FAERS Safety Report 15204460 (Version 2)
Quarter: 2018Q3

REPORT INFORMATION
  Report Type: Spontaneous
  Country: ES (occurrence: ES)
  Receive Date: 20180726
  Receipt Date: 20180822
  Transmission Date: 20181010
  Serious: Yes (Hospitalization)
  Sender: FDA-Public Use
  Company Number: ES-ELI_LILLY_AND_COMPANY-ES201807011215

PATIENT
  Age: 83 Year
  Sex: Female

DRUGS (2)
  1. SINOGAN                            /00038602/ [Suspect]
     Active Substance: LEVOMEPROMAZINE MALEATE
     Indication: MEDICATION ERROR
     Dosage: UNK UNK, UNKNOWN
     Route: 048
     Dates: start: 20180102, end: 20180102
  2. OLANZAPINE. [Suspect]
     Active Substance: OLANZAPINE
     Indication: MEDICATION ERROR
     Dosage: UNK UNK, UNKNOWN
     Route: 048
     Dates: start: 20180102, end: 20180102

REACTIONS (4)
  - Depressed mood [Recovered/Resolved]
  - Somnolence [Recovered/Resolved]
  - Dysarthria [Recovered/Resolved]
  - Depressed level of consciousness [Recovered/Resolved]

NARRATIVE: CASE EVENT DATE: 20180102
